FAERS Safety Report 20343015 (Version 2)
Quarter: 2022Q1

REPORT INFORMATION
  Report Type: Spontaneous
  Country: US (occurrence: US)
  Receive Date: 20220117
  Receipt Date: 20220121
  Transmission Date: 20220423
  Serious: Yes (Other)
  Sender: FDA-Public Use
  Company Number: US-TEVA-2022-US-1999410

PATIENT
  Sex: Female

DRUGS (1)
  1. PROAIR HFA [Suspect]
     Active Substance: ALBUTEROL SULFATE
     Dosage: INHALATION - AEROSOL
     Route: 065

REACTIONS (6)
  - Swollen tongue [Unknown]
  - Palpitations [Unknown]
  - Gingival discomfort [Unknown]
  - Product formulation issue [Unknown]
  - Device occlusion [Unknown]
  - Product taste abnormal [Unknown]
